FAERS Safety Report 4409698-5 (Version None)
Quarter: 2004Q3

REPORT INFORMATION
  Report Type: 
  Country: None (occurrence: None)
  Receive Date: 20040727
  Receipt Date: 20040727
  Transmission Date: 20050211
  Serious: Yes (Other)
  Sender: FDA-Public Use
  Company Number: None

PATIENT
  Age: 2 Year
  Sex: Male
  Weight: 13.2 kg

DRUGS (4)
  1. CARBOPLATIN [Suspect]
     Indication: OPTIC TRACT GLIOMA
     Dosage: 0.85 WEEKLY X 6 INTRAVENOUS
     Route: 042
     Dates: start: 20020524, end: 20030530
  2. BACTRIM [Concomitant]
  3. SENOKOT [Concomitant]
  4. ZOFRAN [Concomitant]

REACTIONS (2)
  - HAEMOLYTIC ANAEMIA [None]
  - URTICARIA [None]
